FAERS Safety Report 9323799 (Version 1)
Quarter: 2013Q2

REPORT INFORMATION
  Report Type: Spontaneous
  Country: US (occurrence: US)
  Receive Date: 20130603
  Receipt Date: 20130603
  Transmission Date: 20140414
  Serious: Yes (Hospitalization, Other)
  Sender: FDA-Public Use
  Company Number: US-ELI_LILLY_AND_COMPANY-US201305008882

PATIENT
  Sex: Female
  Weight: 88.44 kg

DRUGS (1)
  1. HUMALOG LISPRO [Suspect]

REACTIONS (1)
  - Myocardial infarction [Unknown]
